FAERS Safety Report 4541810-X (Version None)
Quarter: 2004Q4

REPORT INFORMATION
  Report Type: 
  Country: None (occurrence: None)
  Receive Date: 20041230
  Receipt Date: 20031121
  Transmission Date: 20050328
  Serious: Yes (Disabling)
  Sender: FDA-Public Use
  Company Number: PHRM2003FR03099

PATIENT
  Age: 72 Year
  Sex: Male
  Weight: 75 kg

DRUGS (5)
  1. GLEEVEC [Suspect]
     Indication: CHRONIC MYELOID LEUKAEMIA
     Dosage: 400 MG, QD
     Route: 048
     Dates: start: 20030708
  2. SOPROL [Suspect]
     Indication: CARDIOMYOPATHY
     Dosage: 5 MG, QD
     Route: 048
     Dates: start: 20010615
  3. DITROPAN [Concomitant]
     Route: 048
  4. ALLOPURINOL [Concomitant]
     Dosage: 200 MG, QD
     Route: 048
     Dates: start: 19650615
  5. BRONCHODUAL [Concomitant]

REACTIONS (5)
  - DRUG INTERACTION [None]
  - HICCUPS [None]
  - MUSCLE RIGIDITY [None]
  - PAIN [None]
  - RAYNAUD'S PHENOMENON [None]
